FAERS Safety Report 5255267-7 (Version None)
Quarter: 2007Q1

REPORT INFORMATION
  Report Type: 
  Country: None (occurrence: None)
  Receive Date: 20070305
  Receipt Date: 20070223
  Transmission Date: 20070707
  Serious: Yes (Other)
  Sender: FDA-Public Use
  Company Number: JP-ROCHE-484576

PATIENT
  Age: 10 Year
  Sex: Male

DRUGS (1)
  1. TAMIFLU [Suspect]
     Route: 048
     Dates: start: 20070219, end: 20070219

REACTIONS (2)
  - DYSPNOEA [None]
  - HALLUCINATION [None]
